FAERS Safety Report 15349045 (Version 1)
Quarter: 2018Q3

REPORT INFORMATION
  Report Type: Spontaneous
  Country: US (occurrence: US)
  Receive Date: 20180904
  Receipt Date: 20180904
  Transmission Date: 20181010
  Serious: No
  Sender: FDA-Public Use
  Company Number: US-TEVA-2018-US-950770

PATIENT
  Sex: Female

DRUGS (1)
  1. MUPIROCIN. [Suspect]
     Active Substance: MUPIROCIN
     Route: 065
     Dates: start: 20180809

REACTIONS (4)
  - Skin exfoliation [Unknown]
  - Drug prescribing error [Unknown]
  - Crepitations [Unknown]
  - Nasal dryness [Unknown]
